FAERS Safety Report 6243228-0 (Version None)
Quarter: 2009Q2

REPORT INFORMATION
  Report Type: 
  Country: None (occurrence: None)
  Receive Date: 20090624
  Receipt Date: 20090623
  Transmission Date: 20091009
  Serious: Yes (Hospitalization, Other)
  Sender: FDA-Public Use
  Company Number: US-ROXANE LABORATORIES, INC.-2009-RO-00611RO

PATIENT
  Age: 60 Year
  Sex: Male

DRUGS (5)
  1. LITHIUM CARBONATE [Suspect]
     Indication: MANIA
     Dosage: 1200 MG
  2. LITHIUM CARBONATE [Suspect]
     Dosage: 300 MG
  3. LITHIUM CARBONATE [Suspect]
     Dosage: 600 MG
  4. LISINOPRIL [Suspect]
     Indication: BLOOD PRESSURE
  5. LISINOPRIL [Suspect]
     Dates: start: 20070701

REACTIONS (2)
  - FALL [None]
  - THERAPEUTIC AGENT TOXICITY [None]
